FAERS Safety Report 8877866 (Version 1)
Quarter: 2012Q4

REPORT INFORMATION
  Report Type: 
  Country: US (occurrence: US)
  Receive Date: 20121025
  Receipt Date: 20121025
  Transmission Date: 20130627
  Serious: No
  Sender: FDA-Public Use
  Company Number: US-AMGEN-USASP2012020636

PATIENT
  Sex: Female

DRUGS (1)
  1. ENBREL [Suspect]
     Indication: PSORIATIC ARTHROPATHY
     Dosage: 50 mg, qwk
     Dates: start: 201003

REACTIONS (5)
  - Hypoaesthesia [Unknown]
  - Muscle twitching [Unknown]
  - Blood pressure increased [Unknown]
  - Sinusitis [Unknown]
  - Paraesthesia [Unknown]
